FAERS Safety Report 8430120-6 (Version None)
Quarter: 2012Q2

REPORT INFORMATION
  Report Type: 
  Country: None (occurrence: None)
  Receive Date: 20120612
  Receipt Date: 20120531
  Transmission Date: 20120825
  Serious: Yes (Hospitalization, Other)
  Sender: FDA-Public Use
  Company Number: PL-ROCHE-1075095

PATIENT
  Sex: Male

DRUGS (6)
  1. VITAMIN B COMPLEX CAP [Concomitant]
     Route: 048
     Dates: start: 20120130
  2. POLPRAZOL [Concomitant]
     Route: 048
     Dates: start: 20120131
  3. ACIDUM FOLICUM [Concomitant]
     Route: 048
     Dates: start: 20120130
  4. MIRCERA [Suspect]
     Indication: ANAEMIA
     Route: 058
     Dates: start: 20120130
  5. PROPRANOLOL [Concomitant]
     Route: 048
     Dates: start: 20120130
  6. ASCORBIC ACID [Concomitant]
     Route: 048
     Dates: start: 20120130

REACTIONS (3)
  - NEPHROPATHY [None]
  - STAG HORN CALCULUS [None]
  - PYELONEPHRITIS CHRONIC [None]
